FAERS Safety Report 6039458-3 (Version None)
Quarter: 2009Q1

REPORT INFORMATION
  Report Type: 
  Country: None (occurrence: None)
  Receive Date: 20090114
  Receipt Date: 20090106
  Transmission Date: 20090719
  Serious: Yes (Death, Hospitalization)
  Sender: FDA-Public Use
  Company Number: FACT0800192

PATIENT
  Age: 94 Year
  Sex: Male

DRUGS (1)
  1. FACTIVE [Suspect]
     Indication: PNEUMONIA
     Dosage: 320 MG
     Dates: start: 20080101, end: 20080101

REACTIONS (4)
  - LUNG NEOPLASM MALIGNANT [None]
  - ORAL MUCOSAL ERUPTION [None]
  - PNEUMONIA [None]
  - RASH MACULO-PAPULAR [None]
